FAERS Safety Report 20345008 (Version 1)
Quarter: 2022Q1

REPORT INFORMATION
  Report Type: Spontaneous
  Country: US (occurrence: US)
  Receive Date: 20220118
  Receipt Date: 20220118
  Transmission Date: 20220423
  Serious: No
  Sender: FDA-Public Use
  Company Number: US-UROGEN PHARMA LTD.-2021-UGN-000107

PATIENT

DRUGS (4)
  1. JELMYTO [Suspect]
     Active Substance: MITOMYCIN
     Indication: Transitional cell cancer of the renal pelvis and ureter
     Dosage: 6 CC (INSTILLATION)
     Dates: start: 2021, end: 2021
  2. JELMYTO [Suspect]
     Active Substance: MITOMYCIN
     Dosage: 6 CC (INSTILLATION)
     Dates: start: 2021, end: 2021
  3. JELMYTO [Suspect]
     Active Substance: MITOMYCIN
     Dosage: 11 CC (INSTILLATION)
     Dates: start: 20211117, end: 20211117
  4. JELMYTO [Suspect]
     Active Substance: MITOMYCIN
     Dosage: 6 CC (INSTILLATION)
     Dates: start: 20211201, end: 20211201

REACTIONS (4)
  - Pain [Unknown]
  - Discomfort [Unknown]
  - Movement disorder [Unknown]
  - Renal haematoma [Unknown]

NARRATIVE: CASE EVENT DATE: 20211101
